FAERS Safety Report 8964483 (Version 2)
Quarter: 2012Q4

REPORT INFORMATION
  Report Type: 
  Country: US (occurrence: US)
  Receive Date: 20121212
  Receipt Date: 20121221
  Transmission Date: 20130627
  Serious: Yes (Hospitalization, Other)
  Sender: FDA-Public Use
  Company Number: US-TARO-2012P1066273

PATIENT
  Age: 75 Year
  Sex: Male
  Weight: 95.26 kg

DRUGS (15)
  1. UNKNOWN (BLINDED) STUDY DRUG [Suspect]
     Route: 061
     Dates: start: 20121129, end: 20121203
  2. GARLIC [Concomitant]
  3. LISINOPRIL [Concomitant]
  4. SYNTHROID [Concomitant]
  5. CAYENNE [Concomitant]
  6. HYTRIN [Concomitant]
  7. ZOCOR [Concomitant]
  8. CALCIUM [Concomitant]
  9. COUMADIN [Concomitant]
     Dates: start: 2004
  10. TOPROL XL [Concomitant]
  11. CELEBREX [Concomitant]
  12. CYMBALTA [Concomitant]
  13. LASIX [Concomitant]
  14. OXYCODONE [Concomitant]
  15. LORTAB [Concomitant]

REACTIONS (1)
  - Embolic stroke [Recovered/Resolved]
